FAERS Safety Report 13951591 (Version 1)
Quarter: 2017Q3

REPORT INFORMATION
  Report Type: Spontaneous
  Country: IT (occurrence: IT)
  Receive Date: 20170908
  Receipt Date: 20170908
  Transmission Date: 20171128
  Serious: Yes (Death, Other)
  Sender: FDA-Public Use
  Company Number: IT-MYLANLABS-2017M1054869

PATIENT
  Age: 16 Month
  Sex: Male

DRUGS (3)
  1. FENOBARBITAL [Suspect]
     Active Substance: PHENOBARBITAL
     Indication: MYOCLONIC EPILEPSY
     Dosage: UNK
  2. LEVETIRACETAM. [Suspect]
     Active Substance: LEVETIRACETAM
     Indication: MYOCLONIC EPILEPSY
     Dosage: UNK
  3. PHENYTOIN. [Suspect]
     Active Substance: PHENYTOIN
     Indication: MYOCLONIC EPILEPSY
     Dosage: UNK

REACTIONS (5)
  - Hyperhidrosis [Recovered/Resolved]
  - Off label use [Unknown]
  - Sudden unexplained death in epilepsy [Fatal]
  - Flushing [Recovered/Resolved]
  - Tachycardia [Recovered/Resolved]
